FAERS Safety Report 15892521 (Version 1)
Quarter: 2019Q1

REPORT INFORMATION
  Report Type: Spontaneous
  Country: PL (occurrence: PL)
  Receive Date: 20190130
  Receipt Date: 20190130
  Transmission Date: 20190417
  Serious: No
  Sender: FDA-Public Use
  Company Number: PL-IPSEN-CABO-18014293

PATIENT
  Age: 67 Year
  Sex: Male

DRUGS (1)
  1. CABOMETYX [Suspect]
     Active Substance: CABOZANTINIB S-MALATE
     Indication: RENAL CELL CARCINOMA
     Dosage: 60 MG, QD

REACTIONS (12)
  - Transaminases increased [Unknown]
  - Blood pressure increased [Unknown]
  - Hypocalcaemia [Unknown]
  - Palmar-plantar erythrodysaesthesia syndrome [Unknown]
  - Heart rate increased [Unknown]
  - Oral pain [Unknown]
  - Hypomagnesaemia [Unknown]
  - Thrombocytopenia [Unknown]
  - Hypothyroidism [Unknown]
  - Diarrhoea [Unknown]
  - Dyspepsia [Unknown]
  - Hypokalaemia [Unknown]
